FAERS Safety Report 4633656-9 (Version None)
Quarter: 2005Q2

REPORT INFORMATION
  Report Type: 
  Country: None (occurrence: None)
  Receive Date: 20050325
  Receipt Date: 20050104
  Transmission Date: 20051028
  Serious: No
  Sender: FDA-Public Use
  Company Number: USA050187360

PATIENT
  Age: 73 Year
  Sex: Female
  Weight: 109 kg

DRUGS (4)
  1. FORTEO [Suspect]
     Indication: FIBROMYALGIA
     Dates: start: 20041101
  2. FORTEO [Suspect]
     Indication: OSTEOPENIA
     Dates: start: 20041101
  3. LANTUS [Concomitant]
  4. GLUCOPHAGE [Concomitant]

REACTIONS (5)
  - BLOOD GLUCOSE DECREASED [None]
  - BLOOD GLUCOSE INCREASED [None]
  - FEELING ABNORMAL [None]
  - PAIN [None]
  - WEIGHT INCREASED [None]
